FAERS Safety Report 24295215 (Version 1)
Quarter: 2024Q3

REPORT INFORMATION
  Report Type: Spontaneous
  Country: US (occurrence: US)
  Receive Date: 20240907
  Receipt Date: 20240907
  Transmission Date: 20241017
  Serious: No
  Sender: GLAXOSMITHKLINE
  Company Number: US-GSKCCFUS-Case-02091616_AE-115562

PATIENT
  Sex: Female

DRUGS (1)
  1. BENLYSTA [Suspect]
     Active Substance: BELIMUMAB
     Indication: Systemic lupus erythematosus
     Dosage: UNK, THERAPY 3 YEARS AGO

REACTIONS (6)
  - Pain in extremity [Unknown]
  - Headache [Unknown]
  - Back pain [Unknown]
  - Swelling [Unknown]
  - Pain [Unknown]
  - Product dose omission issue [Unknown]
